FAERS Safety Report 9785742 (Version 5)
Quarter: 2014Q1

REPORT INFORMATION
  Report Type: Spontaneous
  Country: IT (occurrence: IT)
  Receive Date: 20131227
  Receipt Date: 20140207
  Transmission Date: 20141002
  Serious: Yes (Hospitalization, Other)
  Sender: FDA-Public Use
  Company Number: IT-PFIZER INC-2013363722

PATIENT
  Age: 81 Year
  Sex: Male

DRUGS (9)
  1. ATORVASTATIN CALCIUM [Suspect]
     Dosage: 20 MG, DAILY
     Route: 048
     Dates: end: 20131205
  2. CARDIOASPIRIN [Concomitant]
     Dosage: UNK
  3. FOLINA [Concomitant]
     Dosage: UNK
  4. OLANZAPINE [Concomitant]
     Dosage: UNK
  5. ALFUZOSIN HYDROCHLORIDE [Concomitant]
     Dosage: UNK
  6. MONTELUKAST [Concomitant]
     Dosage: UNK
  7. GABAPENTIN [Concomitant]
     Dosage: UNK
  8. POTASSIUM CANRENOATE [Concomitant]
     Dosage: UNK
  9. MELATONIN [Concomitant]
     Dosage: UNK

REACTIONS (2)
  - Rhabdomyolysis [Recovered/Resolved]
  - Fall [Unknown]
